FAERS Safety Report 25854377 (Version 5)
Quarter: 2025Q4

REPORT INFORMATION
  Report Type: Report from Study
  Country: CA (occurrence: CA)
  Receive Date: 20250927
  Receipt Date: 20251219
  Transmission Date: 20260118
  Serious: Yes (Hospitalization)
  Sender: ABBVIE
  Company Number: CA-ABBVIE-6477171

PATIENT
  Sex: Male

DRUGS (1)
  1. VENCLEXTA [Suspect]
     Active Substance: VENETOCLAX
     Indication: Chronic lymphocytic leukaemia
     Dosage: STRENGTH: 100 MG
     Route: 048
     Dates: start: 20210107

REACTIONS (3)
  - Pelvic fracture [Recovering/Resolving]
  - Pneumonia [Unknown]
  - Back pain [Unknown]
